FAERS Safety Report 10595138 (Version 1)
Quarter: 2014Q4

REPORT INFORMATION
  Report Type: Spontaneous
  Country: US (occurrence: None)
  Receive Date: 20141118
  Receipt Date: 20141118
  Transmission Date: 20150529
  Serious: Yes (Hospitalization, Other)
  Sender: FDA-Public Use
  Company Number: LH201400405

PATIENT
  Age: 26 Year
  Sex: Female

DRUGS (3)
  1. NORCO (HYDROCODONE BITARTRATE, PARACETAMOL) [Concomitant]
  2. MAKENA [Suspect]
     Active Substance: HYDROXYPROGESTERONE CAPROATE
     Indication: PREMATURE DELIVERY
     Route: 030
     Dates: start: 20140821, end: 20141010
  3. MAKENA [Suspect]
     Active Substance: HYDROXYPROGESTERONE CAPROATE
     Indication: OFF LABEL USE
     Route: 030
     Dates: start: 20140821, end: 20141010

REACTIONS (5)
  - Drug dependence, antepartum [None]
  - Small for dates baby [None]
  - Off label use [None]
  - Maternal exposure during pregnancy [None]
  - Amniotic cavity infection [None]

NARRATIVE: CASE EVENT DATE: 2014
